FAERS Safety Report 7482654-9 (Version None)
Quarter: 2011Q2

REPORT INFORMATION
  Report Type: 
  Country: None (occurrence: None)
  Receive Date: 20110516
  Receipt Date: 20110510
  Transmission Date: 20111010
  Serious: Yes (Hospitalization, Other)
  Sender: FDA-Public Use
  Company Number: PHHY2011ES38932

PATIENT
  Age: 51 Year
  Sex: Male

DRUGS (6)
  1. SANDIMMUNE [Suspect]
     Indication: PSORIASIS
     Dosage: 150 MG, BID
     Route: 048
     Dates: start: 20100730, end: 20100804
  2. OMEPRAZOL [Concomitant]
     Dosage: 20 MG, BID
     Dates: start: 20100728
  3. ATARAX [Concomitant]
     Dosage: 25 MG, UNK
     Dates: start: 20100726
  4. SIMVASTATIN [Concomitant]
     Dosage: 20 MG, QD
     Dates: start: 20100722
  5. ALDACTONE [Concomitant]
     Dosage: 100 MG, QD
     Dates: start: 20100722
  6. METFORMIN HCL [Concomitant]
     Dosage: UNK
     Dates: start: 20100727

REACTIONS (4)
  - ALCOHOLISM [None]
  - RENAL FAILURE ACUTE [None]
  - CUSHING'S SYNDROME [None]
  - LIVER FUNCTION TEST ABNORMAL [None]
